FAERS Safety Report 12271123 (Version 1)
Quarter: 2016Q2

REPORT INFORMATION
  Report Type: Spontaneous
  Country: CN (occurrence: CN)
  Receive Date: 20160415
  Receipt Date: 20160415
  Transmission Date: 20160815
  Serious: Yes (Other)
  Sender: FDA-Public Use
  Company Number: CN-PFIZER INC-2016213293

PATIENT
  Age: 82 Year
  Sex: Male
  Weight: 45 kg

DRUGS (1)
  1. DIFLUCAN [Suspect]
     Active Substance: FLUCONAZOLE
     Indication: PNEUMONIA FUNGAL
     Dosage: 0.4 G, UNK
     Route: 042
     Dates: start: 20150706, end: 20150711

REACTIONS (2)
  - Sleep talking [Recovering/Resolving]
  - Delirium [Recovering/Resolving]

NARRATIVE: CASE EVENT DATE: 20150711
